FAERS Safety Report 13208770 (Version 1)
Quarter: 2017Q1

REPORT INFORMATION
  Report Type: Spontaneous
  Country: US (occurrence: US)
  Receive Date: 20170209
  Receipt Date: 20170209
  Transmission Date: 20170428
  Serious: No
  Sender: FDA-Public Use
  Company Number: US-ROCHE-1743800

PATIENT
  Sex: Male

DRUGS (1)
  1. XOLAIR [Suspect]
     Active Substance: OMALIZUMAB
     Indication: ASTHMA
     Route: 058
     Dates: start: 20120725

REACTIONS (8)
  - Dizziness [Unknown]
  - Fractured coccyx [Unknown]
  - Loss of consciousness [Unknown]
  - Pain [Unknown]
  - Arthralgia [Unknown]
  - Scoliosis [Unknown]
  - Headache [Unknown]
  - Blood pressure diastolic increased [Unknown]

NARRATIVE: CASE EVENT DATE: 201401
